FAERS Safety Report 10196728 (Version 1)
Quarter: 2014Q2

REPORT INFORMATION
  Report Type: Spontaneous
  Country: FR (occurrence: FR)
  Receive Date: 20140527
  Receipt Date: 20140527
  Transmission Date: 20141212
  Serious: Yes (Hospitalization)
  Sender: FDA-Public Use
  Company Number: FR-LUNDBECK-DKLU1100184

PATIENT
  Age: 57 Year
  Sex: Male

DRUGS (2)
  1. SABRIL     (TABLET) [Suspect]
     Indication: EPILEPSY
     Dates: start: 201403, end: 20140411
  2. KEPPRA [Concomitant]
     Indication: PRODUCT USED FOR UNKNOWN INDICATION
     Dates: start: 201004

REACTIONS (2)
  - Neurological decompensation [Recovered/Resolved]
  - Coma [Recovered/Resolved]
